FAERS Safety Report 13845278 (Version 1)
Quarter: 2017Q3

REPORT INFORMATION
  Report Type: Spontaneous
  Country: DE (occurrence: DE)
  Receive Date: 20170808
  Receipt Date: 20170808
  Transmission Date: 20171127
  Serious: Yes (Life-Threatening, Hospitalization)
  Sender: FDA-Public Use
  Company Number: DE-PFIZER INC-2017335469

PATIENT
  Age: 75 Year
  Sex: Female
  Weight: 73 kg

DRUGS (2)
  1. TOLTERODINE TARTRATE. [Suspect]
     Active Substance: TOLTERODINE TARTRATE
     Indication: URINARY INCONTINENCE
     Dosage: 4 MG, DAILY
     Dates: start: 201705
  2. FALITHROM [Suspect]
     Active Substance: PHENPROCOUMON
     Indication: HEART VALVE REPLACEMENT
     Dosage: 1.5 MG, UNKNOWN FREQUENCY (USED SINCE YEARS)
     Route: 048

REACTIONS (3)
  - Coagulation time prolonged [Recovering/Resolving]
  - International normalised ratio increased [Recovering/Resolving]
  - Small intestinal haemorrhage [Recovering/Resolving]

NARRATIVE: CASE EVENT DATE: 201706
